FAERS Safety Report 7099998-5 (Version None)
Quarter: 2010Q4

REPORT INFORMATION
  Report Type: 
  Country: None (occurrence: None)
  Receive Date: 20101112
  Receipt Date: 20101029
  Transmission Date: 20110411
  Serious: Yes (Other)
  Sender: FDA-Public Use
  Company Number: AU-GENENTECH-303303

PATIENT
  Sex: Female

DRUGS (4)
  1. LUCENTIS [Suspect]
     Indication: MACULAR DEGENERATION
     Route: 031
  2. GENTEAL HA [Concomitant]
     Indication: PRODUCT USED FOR UNKNOWN INDICATION
  3. CELLUFRESH [Concomitant]
     Indication: PRODUCT USED FOR UNKNOWN INDICATION
  4. ALPHAGAN [Concomitant]
     Indication: PRODUCT USED FOR UNKNOWN INDICATION

REACTIONS (3)
  - FEELING ABNORMAL [None]
  - GLAUCOMA [None]
  - NAUSEA [None]
